FAERS Safety Report 8068490 (Version 2)
Quarter: 2023Q4

REPORT INFORMATION
  Report Type: Spontaneous
  Country: TN (occurrence: TN)
  Receive Date: 20110804
  Receipt Date: 20231219
  Transmission Date: 20240109
  Serious: Yes (Hospitalization, Other)
  Sender: FDA-Public Use
  Company Number: TN-SANOFI-AVENTIS-2011SA049054

PATIENT
  Age: 52 Year
  Sex: Male

DRUGS (3)
  1. CEFOTAXIME SODIUM [Suspect]
     Active Substance: CEFOTAXIME SODIUM
     Indication: Cellulitis orbital
     Dosage: 3 G, QD
     Route: 042
  2. FOSFOMYCIN [Concomitant]
     Active Substance: FOSFOMYCIN
     Indication: Cellulitis orbital
     Dosage: 4 G, QD
  3. CIPROFLOXACIN [Concomitant]
     Active Substance: CIPROFLOXACIN
     Indication: Cellulitis orbital
     Dosage: 1500 MG, QD
     Route: 048

REACTIONS (9)
  - Drug reaction with eosinophilia and systemic symptoms [Recovered/Resolved]
  - Pyrexia [Recovered/Resolved]
  - Rash [Recovered/Resolved]
  - Rash maculo-papular [Recovered/Resolved]
  - Rash erythematous [Recovered/Resolved]
  - Petechiae [Recovered/Resolved]
  - Rash pruritic [Recovered/Resolved]
  - Face oedema [Recovered/Resolved]
  - Tonsillar hypertrophy [Recovered/Resolved]
